FAERS Safety Report 21270628 (Version 1)
Quarter: 2022Q3

REPORT INFORMATION
  Report Type: Spontaneous
  Country: US (occurrence: None)
  Receive Date: 20220829
  Receipt Date: 20220829
  Transmission Date: 20221027
  Serious: No
  Sender: FDA-Public Use
  Company Number: None

PATIENT
  Age: 82 Year
  Sex: Female
  Weight: 50.8 kg

DRUGS (7)
  1. TEMOZOLOMIDE [Suspect]
     Active Substance: TEMOZOLOMIDE
     Indication: Brain neoplasm malignant
     Dosage: FREQUENCY : AT BEDTIME;?
     Route: 048
     Dates: start: 20201130
  2. DILTIAZEM HYDROCHLORIDE [Concomitant]
     Active Substance: DILTIAZEM HYDROCHLORIDE
  3. EFFEXOR XR [Concomitant]
     Active Substance: VENLAFAXINE HYDROCHLORIDE
  4. ELIQUIS [Concomitant]
     Active Substance: APIXABAN
  5. FUROSEMIDE [Concomitant]
     Active Substance: FUROSEMIDE
  6. KEPPRA [Concomitant]
     Active Substance: LEVETIRACETAM
  7. TUMS CHEWY BITES [Concomitant]
     Active Substance: CALCIUM CARBONATE

REACTIONS (1)
  - Thrombocytopenia [None]
